FAERS Safety Report 26086474 (Version 1)
Quarter: 2025Q4

REPORT INFORMATION
  Report Type: Spontaneous
  Country: CN (occurrence: CN)
  Receive Date: 20251125
  Receipt Date: 20251125
  Transmission Date: 20260118
  Serious: Yes (Other)
  Sender: ROCHE
  Company Number: CN-BoehringerIngelheim-2025-BI-108072

PATIENT
  Age: 79 Year
  Sex: Female
  Weight: 91 kg

DRUGS (2)
  1. ALTEPLASE [Suspect]
     Active Substance: ALTEPLASE
     Indication: Cerebral infarction
     Dosage: 10% OF TOTAL DOSE?TOTAL DOSE: 81.9 MG
     Route: 042
     Dates: start: 20251030, end: 20251030
  2. ALTEPLASE [Suspect]
     Active Substance: ALTEPLASE
     Dosage: 90% OF TOTAL DOSE?TOTAL DOSE: 81.9 MG
     Route: 042
     Dates: start: 20251030, end: 20251030

REACTIONS (7)
  - Laryngeal oedema [Recovering/Resolving]
  - Pharyngeal oedema [Recovering/Resolving]
  - Tongue oedema [Recovering/Resolving]
  - Drug hypersensitivity [Recovering/Resolving]
  - Blood pressure systolic increased [Unknown]
  - Laryngeal pain [Recovering/Resolving]
  - Abdominal pain [Recovering/Resolving]

NARRATIVE: CASE EVENT DATE: 20251030
